FAERS Safety Report 6175670-0 (Version None)
Quarter: 2009Q2

REPORT INFORMATION
  Report Type: 
  Country: None (occurrence: None)
  Receive Date: 20090501
  Receipt Date: 20090403
  Transmission Date: 20091009
  Serious: No
  Sender: FDA-Public Use
  Company Number: US-BAYER-200917013NA

PATIENT
  Age: 59 Year
  Sex: Female

DRUGS (7)
  1. AVELOX [Suspect]
     Indication: BRONCHITIS
     Dosage: TOTAL DAILY DOSE: 400 MG  UNIT DOSE: 400 MG
     Dates: start: 20090330, end: 20090401
  2. LEVAQUIN [Suspect]
     Indication: BRONCHITIS
     Dates: start: 20090325, end: 20090331
  3. CIPROFLOXACIN HCL [Suspect]
     Indication: DRUG USE FOR UNKNOWN INDICATION
  4. SYNTHROID [Concomitant]
  5. HYZAAR [Concomitant]
  6. PHENERGAN [Concomitant]
     Dosage: COUGH MEDICINE
  7. PROVENTIL [Concomitant]
     Route: 055

REACTIONS (4)
  - MALAISE [None]
  - MUSCULOSKELETAL PAIN [None]
  - NAUSEA [None]
  - NEURALGIA [None]
